FAERS Safety Report 14681104 (Version 1)
Quarter: 2018Q1

REPORT INFORMATION
  Report Type: Spontaneous
  Country: US (occurrence: US)
  Receive Date: 20180326
  Receipt Date: 20180326
  Transmission Date: 20180509
  Serious: No
  Sender: FDA-Public Use
  Company Number: US-INCYTE CORPORATION-2018IN002621

PATIENT

DRUGS (4)
  1. TRAZODONE [Concomitant]
     Active Substance: TRAZODONE HYDROCHLORIDE
     Indication: PRODUCT USED FOR UNKNOWN INDICATION
     Dosage: UNK
  2. JAKAFI [Suspect]
     Active Substance: RUXOLITINIB
     Indication: MALIGNANT LYMPHOID NEOPLASM
     Dosage: 20 MG, BID
     Route: 048
     Dates: start: 20161206
  3. ASPIRIN                            /00002701/ [Concomitant]
     Active Substance: ASPIRIN
     Indication: PRODUCT USED FOR UNKNOWN INDICATION
     Dosage: UNK
  4. OMEPRAZOLE. [Concomitant]
     Active Substance: OMEPRAZOLE
     Indication: PRODUCT USED FOR UNKNOWN INDICATION
     Dosage: UNK

REACTIONS (8)
  - Pain in jaw [Unknown]
  - Influenza [Unknown]
  - Poor quality sleep [Unknown]
  - Musculoskeletal pain [Unknown]
  - Neck pain [Unknown]
  - Off label use [Unknown]
  - Ear pain [Unknown]
  - Fatigue [Unknown]

NARRATIVE: CASE EVENT DATE: 20161206
